FAERS Safety Report 8906375 (Version 1)
Quarter: 2012Q4

REPORT INFORMATION
  Report Type: Spontaneous
  Country: US (occurrence: None)
  Receive Date: 20121112
  Receipt Date: 20121112
  Transmission Date: 20130627
  Serious: Yes (Hospitalization)
  Sender: FDA-Public Use
  Company Number: None

PATIENT
  Age: 60 Year
  Sex: Female
  Weight: 88.45 kg

DRUGS (2)
  1. CIPROFLOXACIN [Suspect]
     Indication: BLADDER INFECTION
     Dates: start: 2009, end: 2012
  2. CIPRO [Suspect]
     Dosage: numerous times

REACTIONS (1)
  - Tendon rupture [None]
